FAERS Safety Report 12254119 (Version 18)
Quarter: 2017Q1

REPORT INFORMATION
  Report Type: Report from Study
  Country: US (occurrence: US)
  Receive Date: 20160411
  Receipt Date: 20170309
  Transmission Date: 20170428
  Serious: Yes (Other)
  Sender: FDA-Public Use
  Company Number: US-SA-2016SA060293

PATIENT
  Age: 44 Year
  Sex: Female

DRUGS (14)
  1. RANITIDINE. [Concomitant]
     Active Substance: RANITIDINE
  2. ATIVAN [Concomitant]
     Active Substance: LORAZEPAM
  3. LEMTRADA [Suspect]
     Active Substance: ALEMTUZUMAB
     Indication: MULTIPLE SCLEROSIS
     Route: 041
     Dates: start: 20160321, end: 20160325
  4. SENOKOT [Concomitant]
     Active Substance: SENNOSIDES
  5. PRILOSEC [Concomitant]
     Active Substance: OMEPRAZOLE MAGNESIUM
  6. ZYRTEC [Concomitant]
     Active Substance: CETIRIZINE HYDROCHLORIDE
  7. FLONASE [Concomitant]
     Active Substance: FLUTICASONE PROPIONATE
  8. VITAMIN B12 [Concomitant]
     Active Substance: CYANOCOBALAMIN
  9. MACRODANTIN [Concomitant]
     Active Substance: NITROFURANTOIN
     Indication: PROPHYLAXIS
  10. VICODIN [Concomitant]
     Active Substance: ACETAMINOPHEN\HYDROCODONE BITARTRATE
  11. IBUPROFEN. [Concomitant]
     Active Substance: IBUPROFEN
  12. MIRALAX [Concomitant]
     Active Substance: POLYETHYLENE GLYCOL 3350
     Indication: CONSTIPATION
  13. ZOFRAN [Concomitant]
     Active Substance: ONDANSETRON HYDROCHLORIDE
  14. VITAMIN D [Concomitant]
     Active Substance: CHOLECALCIFEROL

REACTIONS (63)
  - Stomatitis [Recovered/Resolved]
  - Muscle spasticity [Not Recovered/Not Resolved]
  - Oral pain [Not Recovered/Not Resolved]
  - Feeding disorder [Not Recovered/Not Resolved]
  - Feeling abnormal [Not Recovered/Not Resolved]
  - Dysgeusia [Not Recovered/Not Resolved]
  - Infusion related reaction [Unknown]
  - Urine abnormality [Not Recovered/Not Resolved]
  - Protein urine present [Not Recovered/Not Resolved]
  - General physical health deterioration [Unknown]
  - Oesophageal ulcer [Not Recovered/Not Resolved]
  - Oral discomfort [Not Recovered/Not Resolved]
  - Condition aggravated [Not Recovered/Not Resolved]
  - Oropharyngeal pain [Not Recovered/Not Resolved]
  - Insomnia [Recovered/Resolved]
  - Anxiety [Unknown]
  - Urine ketone body present [Not Recovered/Not Resolved]
  - Uterine polyp [Unknown]
  - CD4 lymphocytes abnormal [Not Recovered/Not Resolved]
  - Headache [Not Recovered/Not Resolved]
  - Muscular weakness [Not Recovered/Not Resolved]
  - Urinary tract infection [Not Recovered/Not Resolved]
  - Rash [Not Recovered/Not Resolved]
  - Ovarian cyst [Not Recovered/Not Resolved]
  - Multiple sclerosis relapse [Recovered/Resolved]
  - Odynophagia [Not Recovered/Not Resolved]
  - Gastrointestinal mucosal exfoliation [Recovered/Resolved]
  - Scab [Unknown]
  - Faeces soft [Recovered/Resolved]
  - Pain [Recovering/Resolving]
  - Blood pressure increased [Recovered/Resolved]
  - Hypersomnia [Not Recovered/Not Resolved]
  - Rash [Not Recovered/Not Resolved]
  - Rash pruritic [Recovering/Resolving]
  - Diarrhoea [Not Recovered/Not Resolved]
  - Laboratory test abnormal [Not Recovered/Not Resolved]
  - Depression [Not Recovered/Not Resolved]
  - Balance disorder [Unknown]
  - Malaise [Not Recovered/Not Resolved]
  - Platelet count increased [Unknown]
  - Pain [Not Recovered/Not Resolved]
  - Fatigue [Not Recovered/Not Resolved]
  - Muscle spasms [Not Recovered/Not Resolved]
  - Influenza like illness [Recovering/Resolving]
  - Pruritus [Not Recovered/Not Resolved]
  - Vertigo [Not Recovered/Not Resolved]
  - Ovarian cancer [Not Recovered/Not Resolved]
  - Gait disturbance [Not Recovered/Not Resolved]
  - Asthenia [Recovering/Resolving]
  - Nausea [Recovering/Resolving]
  - Fungal infection [Not Recovered/Not Resolved]
  - Fall [Unknown]
  - Tearfulness [Not Recovered/Not Resolved]
  - Carbohydrate antigen 125 increased [Unknown]
  - Central nervous system lesion [Not Recovered/Not Resolved]
  - Muscle spasms [Recovered/Resolved]
  - Neurogenic bladder [Unknown]
  - Throat irritation [Not Recovered/Not Resolved]
  - Constipation [Recovered/Resolved]
  - Bacterial test [Not Recovered/Not Resolved]
  - Urine analysis abnormal [Not Recovered/Not Resolved]
  - Decreased appetite [Recovering/Resolving]
  - Ill-defined disorder [Unknown]

NARRATIVE: CASE EVENT DATE: 2016
